FAERS Safety Report 12289918 (Version 3)
Quarter: 2016Q2

REPORT INFORMATION
  Report Type: Spontaneous
  Country: US (occurrence: US)
  Receive Date: 20160421
  Receipt Date: 20160425
  Transmission Date: 20160815
  Serious: No
  Sender: FDA-Public Use
  Company Number: US-MISSION PHARMACAL COMPANY-1050815

PATIENT
  Age: 15 Year
  Sex: Male

DRUGS (3)
  1. THIOLA [Suspect]
     Active Substance: TIOPRONIN
     Indication: NEPHROLITHIASIS
     Dates: start: 20160330
  2. TYLENOL [Concomitant]
     Active Substance: ACETAMINOPHEN
     Route: 065
  3. PENICILLIN [Concomitant]
     Active Substance: PENICILLIN
     Route: 065

REACTIONS (12)
  - Neck pain [Recovered/Resolved]
  - Hypertension [Unknown]
  - Protein urine present [Unknown]
  - Chills [Unknown]
  - Pyrexia [Recovered/Resolved]
  - Heart rate increased [Unknown]
  - Scarlet fever [Unknown]
  - Pyrexia [Unknown]
  - Lymphadenopathy [Unknown]
  - Dehydration [Unknown]
  - Headache [Recovered/Resolved]
  - Rash generalised [Unknown]

NARRATIVE: CASE EVENT DATE: 20160412
